FAERS Safety Report 4944478-3 (Version None)
Quarter: 2006Q1

REPORT INFORMATION
  Report Type: 
  Country: None (occurrence: None)
  Receive Date: 20060104
  Receipt Date: 20050823
  Transmission Date: 20060701
  Serious: Yes (Hospitalization)
  Sender: FDA-Public Use
  Company Number: A03200502617

PATIENT
  Sex: Female

DRUGS (5)
  1. ELOXATIN [Suspect]
     Indication: COLORECTAL CANCER METASTATIC
     Dosage: 170 MG Q2W - INTRAVENOUS NOS
     Route: 042
     Dates: start: 20050815, end: 20050815
  2. FLUOROURACIL [Concomitant]
  3. LEUCOVORIN CALCIUM [Concomitant]
  4. DEXAMETHASONE TAB [Concomitant]
  5. ONDANSETRON HYDROCHLORIDE [Concomitant]

REACTIONS (12)
  - BLOOD PRESSURE DECREASED [None]
  - DYSGEUSIA [None]
  - ERYTHEMA [None]
  - FEELING HOT [None]
  - HYPERHIDROSIS [None]
  - HYPERSENSITIVITY [None]
  - LOSS OF CONSCIOUSNESS [None]
  - MUCOUS MEMBRANE DISORDER [None]
  - PAIN [None]
  - SENSORY DISTURBANCE [None]
  - SNEEZING [None]
  - SYNCOPE VASOVAGAL [None]
